FAERS Safety Report 7007243-1 (Version None)
Quarter: 2010Q3

REPORT INFORMATION
  Report Type: 
  Country: None (occurrence: None)
  Receive Date: 20100922
  Receipt Date: 20100911
  Transmission Date: 20110219
  Serious: Yes (Other)
  Sender: FDA-Public Use
  Company Number: US-JNJFOC-20100904585

PATIENT
  Sex: Female
  Weight: 63.5 kg

DRUGS (1)
  1. REMICADE [Suspect]
     Indication: RHEUMATOID ARTHRITIS
     Route: 042

REACTIONS (4)
  - DIARRHOEA [None]
  - INFUSION RELATED REACTION [None]
  - INFUSION SITE EXTRAVASATION [None]
  - OEDEMA PERIPHERAL [None]
